FAERS Safety Report 23057561 (Version 4)
Quarter: 2023Q4

REPORT INFORMATION
  Report Type: Report from Study
  Country: NL (occurrence: NL)
  Receive Date: 20231012
  Receipt Date: 20231120
  Transmission Date: 20240110
  Serious: Yes (Hospitalization)
  Sender: FDA-Public Use
  Company Number: NL-AstraZeneca-2023A228918

PATIENT
  Age: 669 Day
  Sex: Male
  Weight: 10.9 kg

DRUGS (3)
  1. SYNAGIS [Suspect]
     Active Substance: PALIVIZUMAB
     Indication: Trisomy 21
     Dosage: 15 MG/KG MONTHLY
     Route: 030
     Dates: end: 202205
  2. SYNAGIS [Suspect]
     Active Substance: PALIVIZUMAB
     Dosage: 15 MG/KG MONTHLY
     Route: 030
     Dates: start: 202309
  3. PALIVIZUMAB [Concomitant]
     Active Substance: PALIVIZUMAB
     Indication: Product used for unknown indication

REACTIONS (4)
  - Oxygen saturation decreased [Not Recovered/Not Resolved]
  - Viral infection [Not Recovered/Not Resolved]
  - Bronchiolitis [Recovering/Resolving]
  - COVID-19 [Recovering/Resolving]

NARRATIVE: CASE EVENT DATE: 20231001
